FAERS Safety Report 21200945 (Version 4)
Quarter: 2022Q3

REPORT INFORMATION
  Report Type: Spontaneous
  Country: US (occurrence: US)
  Receive Date: 20220811
  Receipt Date: 20220902
  Transmission Date: 20221026
  Serious: Yes (Hospitalization, Other)
  Sender: FDA-Public Use
  Company Number: US-MLMSERVICE-20220802-3715184-1

PATIENT
  Age: 21 Year
  Sex: Male

DRUGS (7)
  1. SOLU-MEDROL [Suspect]
     Active Substance: METHYLPREDNISOLONE SODIUM SUCCINATE
     Indication: Multisystem inflammatory syndrome in adults
     Dosage: 2 MG/KG
  2. PREDNISONE [Suspect]
     Active Substance: PREDNISONE
     Indication: Multisystem inflammatory syndrome in adults
     Dosage: 30 MG, 1X/DAY
  3. PREDNISONE [Suspect]
     Active Substance: PREDNISONE
     Dosage: 60 MG, 1X/DAY
  4. PREDNISONE [Suspect]
     Active Substance: PREDNISONE
     Dosage: TAPER
  5. LISINOPRIL [Concomitant]
     Active Substance: LISINOPRIL
     Dosage: UNK
  6. IMMUNE GLOBULIN NOS [Concomitant]
     Active Substance: IMMUNE GLOBULIN NOS
     Indication: Multisystem inflammatory syndrome in adults
     Dosage: UNK
     Route: 042
  7. ASPIRIN [Concomitant]
     Active Substance: ASPIRIN
     Dosage: LOW-DOSE

REACTIONS (12)
  - Papilloedema [Recovering/Resolving]
  - Retinal haemorrhage [Recovering/Resolving]
  - Infective myositis [Recovering/Resolving]
  - Chorioretinitis [Recovering/Resolving]
  - Demyelination [Recovering/Resolving]
  - Papillitis [Recovering/Resolving]
  - Cerebral toxoplasmosis [Recovering/Resolving]
  - Eye infection toxoplasmal [Recovering/Resolving]
  - Splenomegaly [Recovering/Resolving]
  - Retinal white dots syndrome [Recovering/Resolving]
  - Condition aggravated [Recovering/Resolving]
  - Vitritis infective [Recovering/Resolving]
